FAERS Safety Report 7374346-1 (Version None)
Quarter: 2011Q1

REPORT INFORMATION
  Report Type: 
  Country: None (occurrence: None)
  Receive Date: 20110317
  Receipt Date: 20110304
  Transmission Date: 20110831
  Serious: Yes (Death, Life-Threatening, Hospitalization, Other)
  Sender: FDA-Public Use
  Company Number: 2010AC000365

PATIENT
  Age: 83 Year
  Sex: Female

DRUGS (29)
  1. DIGOXIN [Suspect]
     Indication: ATRIAL FIBRILLATION
     Dosage: 0.5 MG; 1X; IV
     Route: 042
     Dates: start: 20080405, end: 20080405
  2. DIGOXIN [Suspect]
     Indication: SUPRAVENTRICULAR TACHYCARDIA
     Dosage: 0.5 MG; 1X; IV
     Route: 042
     Dates: start: 20080405, end: 20080405
  3. PANTOPRZOLE [Concomitant]
  4. TROPROST [Concomitant]
  5. CEFTRIAXONE [Concomitant]
  6. PERCOCET [Concomitant]
  7. DESYREL [Concomitant]
  8. PROTONIX [Concomitant]
  9. OXYCODONE HCL [Concomitant]
  10. DITROPAN [Concomitant]
  11. ADVAIR HFA [Concomitant]
  12. ALPRAZOLAM [Concomitant]
  13. PREVACID [Concomitant]
  14. RELAFEN [Concomitant]
  15. ZOLOFT [Concomitant]
  16. TRAVATAN [Concomitant]
  17. LEVAQUIN [Concomitant]
  18. PROPRANOLOL [Concomitant]
  19. INDERAL [Concomitant]
  20. DIGIBYN [Concomitant]
  21. REGLAN [Concomitant]
  22. CARAFATE [Concomitant]
  23. LEVOFLOXACIN [Concomitant]
  24. ALPHAGAN [Concomitant]
  25. DIGOXIN [Suspect]
     Indication: ATRIAL FIBRILLATION
     Dosage: 0.25 MG; QD; PO
     Route: 048
     Dates: start: 20080406, end: 20080601
  26. DIGOXIN [Suspect]
     Indication: SUPRAVENTRICULAR TACHYCARDIA
     Dosage: 0.25 MG; QD; PO
     Route: 048
     Dates: start: 20080406, end: 20080601
  27. ADVAIR HFA [Concomitant]
  28. OXYBUTYNIN [Concomitant]
  29. LIBRAX [Concomitant]

REACTIONS (61)
  - TRICUSPID VALVE INCOMPETENCE [None]
  - HIGH DENSITY LIPOPROTEIN DECREASED [None]
  - WEIGHT DECREASED [None]
  - CONFUSIONAL STATE [None]
  - DYSPNOEA [None]
  - ATRIAL FIBRILLATION [None]
  - CARDIO-RESPIRATORY ARREST [None]
  - DECREASED APPETITE [None]
  - HYPOTENSION [None]
  - RIGHT ATRIAL DILATATION [None]
  - ATELECTASIS [None]
  - BLOOD CHOLESTEROL INCREASED [None]
  - BLOOD TRIGLYCERIDES INCREASED [None]
  - TOXICITY TO VARIOUS AGENTS [None]
  - MITRAL VALVE INCOMPETENCE [None]
  - ACTIVITIES OF DAILY LIVING IMPAIRED [None]
  - ABDOMINAL PAIN UPPER [None]
  - ANXIETY [None]
  - PERICARDIAL EFFUSION [None]
  - DEHYDRATION [None]
  - EXERCISE TOLERANCE DECREASED [None]
  - MYALGIA [None]
  - DISORIENTATION [None]
  - OXYGEN SATURATION DECREASED [None]
  - NODAL RHYTHM [None]
  - FATIGUE [None]
  - ABDOMINAL PAIN [None]
  - PAIN [None]
  - VOMITING [None]
  - MANIA [None]
  - HIATUS HERNIA [None]
  - RENAL FAILURE ACUTE [None]
  - ASPARTATE AMINOTRANSFERASE INCREASED [None]
  - ESCHERICHIA TEST POSITIVE [None]
  - DIARRHOEA [None]
  - ARRHYTHMIA [None]
  - VIRAL INFECTION [None]
  - COORDINATION ABNORMAL [None]
  - MENTAL STATUS CHANGES [None]
  - ATRIOVENTRICULAR BLOCK [None]
  - RESPIRATORY FAILURE [None]
  - NAUSEA [None]
  - CARDIAC DISORDER [None]
  - GENERAL PHYSICAL HEALTH DETERIORATION [None]
  - DILATATION VENTRICULAR [None]
  - PULMONARY HYPERTENSION [None]
  - BRONCHITIS [None]
  - URINARY TRACT INFECTION [None]
  - SEPSIS [None]
  - REFLUX OESOPHAGITIS [None]
  - AFFECTIVE DISORDER [None]
  - OESOPHAGEAL HYPOMOTILITY [None]
  - ELECTROCARDIOGRAM ST SEGMENT ABNORMAL [None]
  - HYPOVOLAEMIA [None]
  - ACUTE PRERENAL FAILURE [None]
  - LABORATORY TEST INTERFERENCE [None]
  - BRADYCARDIA [None]
  - ASTHENIA [None]
  - BALANCE DISORDER [None]
  - METABOLIC ACIDOSIS [None]
  - RENAL TUBULAR NECROSIS [None]
